FAERS Safety Report 8260566-0 (Version None)
Quarter: 2012Q2

REPORT INFORMATION
  Report Type: 
  Country: None (occurrence: None)
  Receive Date: 20120404
  Receipt Date: 20120323
  Transmission Date: 20120825
  Serious: Yes (Other)
  Sender: FDA-Public Use
  Company Number: US-ELI_LILLY_AND_COMPANY-US201203007996

PATIENT
  Age: 60 Year
  Sex: Female

DRUGS (6)
  1. VITAMIN D [Concomitant]
  2. CYMBALTA [Suspect]
     Dosage: 30 MG, QOD
     Dates: start: 20120219, end: 20120318
  3. CYMBALTA [Suspect]
     Indication: DEPRESSION
     Dosage: 30 MG, QD
     Dates: start: 20050101, end: 20120201
  4. CLARITIN-D [Concomitant]
  5. LIPITOR [Concomitant]
  6. CALCIUM MAGNESIUM [Concomitant]

REACTIONS (5)
  - BREAST CANCER [None]
  - INSOMNIA [None]
  - TINNITUS [None]
  - NAUSEA [None]
  - DRUG WITHDRAWAL SYNDROME [None]
